FAERS Safety Report 20231045 (Version 7)
Quarter: 2023Q4

REPORT INFORMATION
  Report Type: Spontaneous
  Country: CA (occurrence: CA)
  Receive Date: 20211227
  Receipt Date: 20231218
  Transmission Date: 20240110
  Serious: Yes (Other)
  Sender: FDA-Public Use
  Company Number: CA-PFIZER INC-2021330360

PATIENT
  Age: 60 Year
  Sex: Female

DRUGS (15)
  1. RUXIENCE [Suspect]
     Active Substance: RITUXIMAB-PVVR
     Indication: Rheumatoid arthritis
     Dosage: 1000 MG AT DAY 1 AND 15
     Route: 042
     Dates: start: 20210420
  2. RUXIENCE [Suspect]
     Active Substance: RITUXIMAB-PVVR
     Dosage: 1000 MG AT DAY 1 AND 15
     Route: 042
     Dates: start: 20210617, end: 20210617
  3. RUXIENCE [Suspect]
     Active Substance: RITUXIMAB-PVVR
     Dosage: 1000 MG AT DAY 1 AND 15
     Route: 042
     Dates: start: 20220318, end: 20220402
  4. RUXIENCE [Suspect]
     Active Substance: RITUXIMAB-PVVR
     Dosage: 1000 MG AT DAY 1 AND 15
     Route: 042
     Dates: start: 20220402
  5. RUXIENCE [Suspect]
     Active Substance: RITUXIMAB-PVVR
     Dosage: 1000 MG AT DAY 1 AND 15
     Route: 042
     Dates: start: 20231124
  6. RUXIENCE [Suspect]
     Active Substance: RITUXIMAB-PVVR
     Dosage: 1000 MG AT DAY 1 AND 15
     Route: 042
     Dates: start: 20231207
  7. ACETAMINOPHEN [Concomitant]
     Active Substance: ACETAMINOPHEN
     Dosage: 500 MG
     Route: 065
  8. ALENDRONATE [Concomitant]
     Active Substance: ALENDRONATE SODIUM
     Dosage: 75 MG
     Route: 065
  9. CALCIUM [Concomitant]
     Active Substance: CALCIUM
     Dosage: 500 MG
     Route: 065
  10. HYDROXYCHLOROQUINE [Concomitant]
     Active Substance: HYDROXYCHLOROQUINE
     Dosage: 1 DF,DOSAGE INFORMATION NOT AVAILABLE
     Route: 065
  11. LEFLUNOMIDE [Concomitant]
     Active Substance: LEFLUNOMIDE
     Dosage: 20 MG
     Route: 065
  12. MAGNESIUM [Concomitant]
     Active Substance: MAGNESIUM
     Dosage: 100 MG
     Route: 065
  13. MULTI VITAMIN [ARGININE HYDROCHLORIDE;ASCORBIC ACID;CALCIUM;CALCIUM PA [Concomitant]
     Dosage: 1 DF,DOSAGE INFORMATION NOT AVAILABLE
     Route: 065
  14. PANTOPRAZOLE [Concomitant]
     Active Substance: PANTOPRAZOLE
     Dosage: 40 MG
     Route: 065
  15. ZOPICLONE [Concomitant]
     Active Substance: ZOPICLONE
     Dosage: 1 DF,DOSAGE INFORMATION NOT AVAILABLE
     Route: 065

REACTIONS (18)
  - Immunodeficiency [Not Recovered/Not Resolved]
  - Pneumonia [Unknown]
  - Rash [Unknown]
  - Blood pressure fluctuation [Unknown]
  - Pyrexia [Not Recovered/Not Resolved]
  - Rhinorrhoea [Not Recovered/Not Resolved]
  - Nasopharyngitis [Unknown]
  - General physical health deterioration [Not Recovered/Not Resolved]
  - Psychiatric symptom [Not Recovered/Not Resolved]
  - Bronchitis [Unknown]
  - Illness [Unknown]
  - Cough [Unknown]
  - Sputum discoloured [Unknown]
  - Nasal congestion [Unknown]
  - Fatigue [Unknown]
  - Productive cough [Not Recovered/Not Resolved]
  - Off label use [Unknown]
  - Intentional product use issue [Unknown]

NARRATIVE: CASE EVENT DATE: 20210101
